FAERS Safety Report 9563259 (Version 6)
Quarter: 2014Q1

REPORT INFORMATION
  Report Type: Report from Study
  Country: CA (occurrence: CA)
  Receive Date: 20130927
  Receipt Date: 20140224
  Transmission Date: 20141002
  Serious: Yes (Other)
  Sender: FDA-Public Use
  Company Number: PHHY2013CA002860

PATIENT
  Age: 43 Year
  Sex: Female
  Weight: 51 kg

DRUGS (1)
  1. EXTAVIA [Suspect]
     Indication: RELAPSING-REMITTING MULTIPLE SCLEROSIS
     Dosage: UNK UKN, UNK
     Route: 058
     Dates: start: 201205

REACTIONS (10)
  - Optic neuritis [Unknown]
  - Blindness unilateral [Recovering/Resolving]
  - Vision blurred [Unknown]
  - Hemiparesis [Unknown]
  - Muscular weakness [Unknown]
  - Multiple sclerosis relapse [Unknown]
  - Nasopharyngitis [Unknown]
  - Gait disturbance [Unknown]
  - Injection site pain [Unknown]
  - Drug ineffective [Unknown]
